FAERS Safety Report 4866297-9 (Version None)
Quarter: 2005Q4

REPORT INFORMATION
  Report Type: 
  Country: None (occurrence: None)
  Receive Date: 20051221
  Receipt Date: 20051212
  Transmission Date: 20060501
  Serious: Yes (Other)
  Sender: FDA-Public Use
  Company Number: 2005168482

PATIENT
  Age: 76 Year
  Sex: Male

DRUGS (3)
  1. LIPITOR [Suspect]
     Indication: BLOOD CHOLESTEROL INCREASED
     Dosage: 40 MG (10 MG, 1 IN 1D)
     Dates: start: 20030501, end: 20051201
  2. ACCUPRIL [Concomitant]
  3. GLUCOPHAGE [Concomitant]

REACTIONS (5)
  - DIFFICULTY IN WALKING [None]
  - DYSARTHRIA [None]
  - DYSSTASIA [None]
  - FALL [None]
  - TRANSIENT ISCHAEMIC ATTACK [None]
